FAERS Safety Report 14189402 (Version 1)
Quarter: 2017Q4

REPORT INFORMATION
  Report Type: Spontaneous
  Country: AU (occurrence: AU)
  Receive Date: 20171115
  Receipt Date: 20171115
  Transmission Date: 20180321
  Serious: Yes (Other)
  Sender: FDA-Public Use
  Company Number: AU-VISTAPHARM, INC.-VER201711-001082

PATIENT
  Age: 60 Year
  Sex: Female

DRUGS (2)
  1. PREDNISOLONE. [Suspect]
     Active Substance: PREDNISOLONE
     Indication: PRODUCT USED FOR UNKNOWN INDICATION
     Route: 048
  2. PREDNISOLONE. [Suspect]
     Active Substance: PREDNISOLONE

REACTIONS (4)
  - Swollen tongue [Unknown]
  - Wheezing [Unknown]
  - Dyspnoea [Unknown]
  - Hypoxia [Unknown]
